FAERS Safety Report 5255936-9 (Version None)
Quarter: 2007Q1

REPORT INFORMATION
  Report Type: 
  Country: None (occurrence: None)
  Receive Date: 20061204
  Receipt Date: 20060829
  Transmission Date: 20070707
  Serious: No
  Sender: FDA-Public Use
  Company Number: 2006-BP-10045BP

PATIENT
  Age: 83 Year
  Sex: Female

DRUGS (4)
  1. SPIRIVA [Suspect]
     Indication: CHRONIC OBSTRUCTIVE PULMONARY DISEASE
     Dosage: 18 MCG (18 MCG, 1 IN 1 D), IH
     Route: 055
     Dates: start: 20060805
  2. ADVAIR (SERETIDE) [Concomitant]
  3. HYZAAR [Concomitant]
  4. VITORIN (INEGY) [Concomitant]

REACTIONS (4)
  - CONSTIPATION [None]
  - DYSPHONIA [None]
  - EYE IRRITATION [None]
  - PRURITUS GENERALISED [None]
